FAERS Safety Report 23421999 (Version 1)
Quarter: 2024Q1

REPORT INFORMATION
  Report Type: Spontaneous
  Country: CN (occurrence: CN)
  Receive Date: 20240119
  Receipt Date: 20240119
  Transmission Date: 20240410
  Serious: Yes (Life-Threatening)
  Sender: FDA-Public Use
  Company Number: CN-AMGEN-CHNSP2024008809

PATIENT
  Age: 78 Year
  Sex: Male

DRUGS (1)
  1. EVOLOCUMAB [Suspect]
     Active Substance: EVOLOCUMAB
     Indication: Hyperlipidaemia
     Dosage: 1.000 MILLILITER (FREQUENCY: 1)
     Route: 058
     Dates: start: 20240104, end: 20240104

REACTIONS (2)
  - Tachypnoea [Recovering/Resolving]
  - Chest discomfort [Recovering/Resolving]

NARRATIVE: CASE EVENT DATE: 20240104
